FAERS Safety Report 11912042 (Version 1)
Quarter: 2016Q1

REPORT INFORMATION
  Report Type: Other
  Country: GB (occurrence: GB)
  Receive Date: 20160112
  Receipt Date: 20160112
  Transmission Date: 20160526
  Serious: Yes (Other)
  Sender: FDA-Public Use
  Company Number: GB-MYLANLABS-2016M1000581

PATIENT

DRUGS (6)
  1. PREDNISOLONE. [Concomitant]
     Active Substance: PREDNISOLONE
     Dosage: 6 DF, UNK (TAKE 6 TABLETS PER DAY FOR 5 DAYS)
     Dates: start: 20150413
  2. DOXYCYCLINE. [Suspect]
     Active Substance: DOXYCYCLINE
     Dosage: UNK
     Dates: start: 20151221
  3. SALBUTAMOL [Concomitant]
     Active Substance: ALBUTEROL
     Dosage: UNK (ONE TO TWO PUFF FOUR TIMES DAILY WHEN REQUIRED)
     Dates: start: 20150413
  4. AMOXICILLIN. [Concomitant]
     Active Substance: AMOXICILLIN
     Dosage: 1 DF, TID
     Dates: start: 20151221
  5. QVAR [Concomitant]
     Active Substance: BECLOMETHASONE DIPROPIONATE
     Dosage: 1 DF, BID
     Dates: start: 20150413
  6. SEREVENT DISKUS [Concomitant]
     Active Substance: SALMETEROL XINAFOATE
     Dosage: 2 DF, BID
     Route: 055
     Dates: start: 20150413

REACTIONS (1)
  - Palpitations [Recovered/Resolved]

NARRATIVE: CASE EVENT DATE: 20151221
